FAERS Safety Report 11055162 (Version 1)
Quarter: 2015Q2

REPORT INFORMATION
  Report Type: Spontaneous
  Country: US (occurrence: None)
  Receive Date: 20150421
  Receipt Date: 20150421
  Transmission Date: 20150821
  Serious: No
  Sender: FDA-Public Use
  Company Number: None

PATIENT
  Age: 65 Year
  Sex: Female

DRUGS (3)
  1. PROAIR HFA [Concomitant]
     Active Substance: ALBUTEROL SULFATE
  2. PATANASE [Concomitant]
     Active Substance: OLOPATADINE HYDROCHLORIDE
  3. IMBRUVICA [Suspect]
     Active Substance: IBRUTINIB
     Indication: LYMPHOMA
     Route: 048
     Dates: start: 20140906

REACTIONS (2)
  - Arthralgia [None]
  - Alopecia [None]

NARRATIVE: CASE EVENT DATE: 20150420
